FAERS Safety Report 12466726 (Version 2)
Quarter: 2016Q2

REPORT INFORMATION
  Report Type: Spontaneous
  Country: IT (occurrence: IT)
  Receive Date: 20160615
  Receipt Date: 20160625
  Transmission Date: 20160815
  Serious: Yes (Hospitalization)
  Sender: FDA-Public Use
  Company Number: IT-ACCORD-041440

PATIENT
  Age: 75 Year
  Sex: Female

DRUGS (6)
  1. FORMISTIN [Concomitant]
     Dosage: STRENGTH: 10 MG/ML
  2. DIBASE [Concomitant]
     Active Substance: CHOLECALCIFEROL
     Dosage: STRENGTH: 25.000 UI/2.5 ML
  3. NATECAL D3 [Concomitant]
     Active Substance: CALCIUM CARBONATE\CHOLECALCIFEROL
     Dosage: STRENGTH: 600 MG + 400 UI
  4. LETROZOLE. [Suspect]
     Active Substance: LETROZOLE
     Indication: BREAST CANCER
     Route: 048
     Dates: start: 20150101, end: 20160308
  5. PALEXIA [Suspect]
     Active Substance: TAPENTADOL HYDROCHLORIDE
     Indication: PRODUCT USED FOR UNKNOWN INDICATION
     Dosage: STRENGTH: 50 MG
     Route: 048
     Dates: start: 20150101, end: 20160308
  6. CIPRALEX [Concomitant]
     Active Substance: ESCITALOPRAM OXALATE
     Dosage: STRENGTH: 20 MG

REACTIONS (3)
  - Toxic skin eruption [Recovered/Resolved]
  - Rash papular [Recovered/Resolved]
  - Pruritus [Recovered/Resolved]

NARRATIVE: CASE EVENT DATE: 20160307
